FAERS Safety Report 6590901-0 (Version None)
Quarter: 2010Q1

REPORT INFORMATION
  Report Type: 
  Country: None (occurrence: None)
  Receive Date: 20100212
  Receipt Date: 20100201
  Transmission Date: 20100710
  Serious: Yes (Other)
  Sender: FDA-Public Use
  Company Number: 2010S1000685

PATIENT
  Sex: Male

DRUGS (1)
  1. SODIUM PHOSPHATES [Suspect]
     Indication: DRUG USE FOR UNKNOWN INDICATION
     Dosage: PO
     Route: 048
     Dates: start: 20050101, end: 20050101

REACTIONS (1)
  - RENAL INJURY [None]
